FAERS Safety Report 13260287 (Version 3)
Quarter: 2017Q1

REPORT INFORMATION
  Report Type: Report from Study
  Country: US (occurrence: US)
  Receive Date: 20170222
  Receipt Date: 20170317
  Transmission Date: 20170428
  Serious: Yes (Hospitalization, Other)
  Sender: FDA-Public Use
  Company Number: US-ASTRAZENECA-2017SE16650

PATIENT
  Age: 701 Month
  Sex: Female
  Weight: 106.6 kg

DRUGS (18)
  1. AMLODIPINE [Concomitant]
     Active Substance: AMLODIPINE BESYLATE
     Indication: BLOOD PRESSURE ABNORMAL
     Dosage: 10.0MG UNKNOWN
     Route: 048
  2. POTASSIUM [Concomitant]
     Active Substance: POTASSIUM
     Route: 048
  3. ATENOLOL. [Suspect]
     Active Substance: ATENOLOL
     Indication: HYPERTENSION
     Route: 048
  4. BYDUREON [Suspect]
     Active Substance: EXENATIDE
     Route: 058
     Dates: end: 20170103
  5. HYDROCHLOROTHIAZIDE. [Suspect]
     Active Substance: HYDROCHLOROTHIAZIDE
     Route: 065
  6. BAYER ASPIRIN [Concomitant]
     Active Substance: ASPIRIN
     Route: 048
  7. BYDUREON [Suspect]
     Active Substance: EXENATIDE
     Route: 058
     Dates: start: 201512
  8. PANTOPRAZOLE [Concomitant]
     Active Substance: PANTOPRAZOLE SODIUM
     Indication: GASTROOESOPHAGEAL REFLUX DISEASE
     Route: 048
  9. CLONIDINE. [Concomitant]
     Active Substance: CLONIDINE
     Indication: HYPERTENSION
     Route: 048
  10. LOSARTAN. [Concomitant]
     Active Substance: LOSARTAN
     Route: 048
  11. SIMVASTATIN. [Concomitant]
     Active Substance: SIMVASTATIN
     Indication: BLOOD CHOLESTEROL ABNORMAL
     Route: 048
  12. MAGNESIUM OXIDE. [Concomitant]
     Active Substance: MAGNESIUM OXIDE
     Indication: MINERAL SUPPLEMENTATION
     Route: 048
  13. XANAX [Concomitant]
     Active Substance: ALPRAZOLAM
     Indication: ANXIETY
     Dosage: 1.0MG AS REQUIRED
     Route: 048
  14. BYDUREON [Suspect]
     Active Substance: EXENATIDE
     Route: 058
     Dates: start: 20160110, end: 20161231
  15. WELLBUTRIN [Concomitant]
     Active Substance: BUPROPION HYDROCHLORIDE
     Indication: DEPRESSION
     Route: 048
  16. LOSARTAN. [Concomitant]
     Active Substance: LOSARTAN
     Route: 048
  17. SYNTHROID [Concomitant]
     Active Substance: LEVOTHYROXINE SODIUM
     Indication: THYROID DISORDER
     Dosage: 50 MG IN THE EVENING
     Route: 048
  18. CALCITROL [Concomitant]
     Active Substance: CALCITRIOL
     Dosage: 25 MG MONDAY WEDNESDAY AND FRIDAY
     Route: 048

REACTIONS (9)
  - Blood glucose increased [Unknown]
  - Blood potassium decreased [Unknown]
  - Diabetic coma [Unknown]
  - Oedema peripheral [Unknown]
  - Drug dose omission [Not Recovered/Not Resolved]
  - Bladder disorder [Unknown]
  - Intentional product misuse [Not Recovered/Not Resolved]
  - Diarrhoea [Unknown]
  - Depression [Unknown]

NARRATIVE: CASE EVENT DATE: 201611
